FAERS Safety Report 15789806 (Version 1)
Quarter: 2019Q1

REPORT INFORMATION
  Report Type: Spontaneous
  Country: MX (occurrence: MX)
  Receive Date: 20190104
  Receipt Date: 20190104
  Transmission Date: 20190417
  Serious: Yes (Hospitalization)
  Sender: FDA-Public Use
  Company Number: MX-PFIZER INC-2019005127

PATIENT
  Age: 53 Year
  Sex: Male

DRUGS (3)
  1. HALCION [Interacting]
     Active Substance: TRIAZOLAM
     Dosage: 0.250 MG, UNK
     Dates: start: 20181221, end: 20181223
  2. ALTRULINE [Suspect]
     Active Substance: SERTRALINE HYDROCHLORIDE
     Dosage: 50 MG, UNK
  3. METFORMINE [METFORMIN] [Concomitant]
     Active Substance: METFORMIN HYDROCHLORIDE
     Indication: GLUCOSE TOLERANCE IMPAIRED
     Dosage: UNK
     Dates: end: 20181223

REACTIONS (5)
  - Hypoaesthesia oral [Recovered/Resolved]
  - Intentional product misuse [Recovered/Resolved]
  - Gait disturbance [Recovered/Resolved]
  - Somnolence [Recovered/Resolved]
  - Drug interaction [Recovered/Resolved]

NARRATIVE: CASE EVENT DATE: 20181222
